FAERS Safety Report 16824074 (Version 1)
Quarter: 2019Q3

REPORT INFORMATION
  Report Type: Spontaneous
  Country: JP (occurrence: JP)
  Receive Date: 20190918
  Receipt Date: 20190918
  Transmission Date: 20191005
  Serious: Yes (Hospitalization, Other)
  Sender: FDA-Public Use
  Company Number: JP-009507513-1909JPN005628

PATIENT
  Age: 68 Year
  Sex: Male
  Weight: 52 kg

DRUGS (9)
  1. JANUVIA [Suspect]
     Active Substance: SITAGLIPTIN PHOSPHATE
     Dosage: UNK
     Route: 048
  2. VALPROATE SODIUM. [Suspect]
     Active Substance: VALPROATE SODIUM
     Dosage: 17DEC09-06JAN10:100MG,TID 07JAN10-02MAR12:100MG,BID
     Route: 048
     Dates: start: 20100107, end: 20120302
  3. ABILIFY [Suspect]
     Active Substance: ARIPIPRAZOLE
     Indication: PERSECUTORY DELUSION
     Dosage: 03MAR11-02MAR12:1.5MG/D
     Route: 048
     Dates: start: 20110303, end: 20120302
  4. ABILIFY [Suspect]
     Active Substance: ARIPIPRAZOLE
     Indication: COMPULSIONS
     Dosage: 03MAR11-02MAR12:1.5MG/D
     Route: 048
     Dates: start: 20110303, end: 20120302
  5. VALPROATE SODIUM. [Suspect]
     Active Substance: VALPROATE SODIUM
     Indication: MOOD SWINGS
     Dosage: 17DEC09-06JAN10:100MG,TID 07JAN10-02MAR12:100MG,BID
     Route: 048
     Dates: start: 20091217, end: 20100106
  6. VALPROATE SODIUM. [Suspect]
     Active Substance: VALPROATE SODIUM
     Dosage: 17DEC09-06JAN10:100MG,TID 07JAN10-02MAR12:100MG,BID
     Route: 048
     Dates: start: 20100107, end: 20120302
  7. VALPROATE SODIUM. [Suspect]
     Active Substance: VALPROATE SODIUM
     Indication: ELECTROENCEPHALOGRAM ABNORMAL
     Dosage: 17DEC09-06JAN10:100MG,TID 07JAN10-02MAR12:100MG,BID
     Route: 048
     Dates: start: 20091217, end: 20100106
  8. ABILIFY [Suspect]
     Active Substance: ARIPIPRAZOLE
     Indication: ABNORMAL BEHAVIOUR
     Dosage: 03MAR11-02MAR12:1.5MG/D
     Route: 048
     Dates: start: 20110303, end: 20120302
  9. CRESTOR [Suspect]
     Active Substance: ROSUVASTATIN CALCIUM
     Dosage: UNK
     Route: 048

REACTIONS (4)
  - Rhabdomyolysis [Recovered/Resolved]
  - Gastroenteritis radiation [Unknown]
  - Haematuria [Unknown]
  - Herpes zoster [Unknown]

NARRATIVE: CASE EVENT DATE: 201202
